FAERS Safety Report 4555159-2 (Version None)
Quarter: 2005Q1

REPORT INFORMATION
  Report Type: 
  Country: None (occurrence: None)
  Receive Date: 20050118
  Receipt Date: 20041111
  Transmission Date: 20050727
  Serious: Yes (Other)
  Sender: FDA-Public Use
  Company Number: DE-MERCK-0411DEU00232

PATIENT
  Age: 57 Year
  Sex: Male

DRUGS (5)
  1. VIOXX [Suspect]
     Indication: OSTEOARTHRITIS
     Route: 048
     Dates: start: 20010406, end: 20040916
  2. PIRETANIDE [Concomitant]
     Route: 065
  3. ATORVASTATIN CALCIUM [Concomitant]
     Route: 048
  4. NIFEDIPINE [Concomitant]
     Route: 001
  5. FENOFIBRATE [Concomitant]
     Route: 065

REACTIONS (1)
  - CEREBROVASCULAR ACCIDENT [None]
